FAERS Safety Report 9188447 (Version 1)
Quarter: 2012Q4

REPORT INFORMATION
  Report Type: 
  Country: US (occurrence: US)
  Receive Date: 20121205
  Receipt Date: 20121205
  Transmission Date: 20130627
  Serious: No
  Sender: FDA-Public Use
  Company Number: US-BAYER-2012-126481

PATIENT
  Age: 30 Year
  Sex: Male

DRUGS (1)
  1. GADAVIST [Suspect]
     Dosage: 6.6 ml, ONCE
     Dates: start: 20121203, end: 20121203

REACTIONS (1)
  - Nausea [Recovered/Resolved]
